FAERS Safety Report 13864653 (Version 1)
Quarter: 2017Q3

REPORT INFORMATION
  Report Type: Spontaneous
  Country: US (occurrence: US)
  Receive Date: 20170813
  Receipt Date: 20170813
  Transmission Date: 20171127
  Serious: Yes (Disabling, Other)
  Sender: FDA-Public Use
  Company Number: None

PATIENT
  Age: 14 Year
  Sex: Male
  Weight: 58 kg

DRUGS (7)
  1. BOTOX [Suspect]
     Active Substance: ONABOTULINUMTOXINA
     Indication: MIGRAINE
     Dosage: QUANTITY:155 UNITS;OTHER FREQUENCY:1 SET OF INJECTION;?
     Route: 058
     Dates: start: 20170609, end: 20170609
  2. RITALIN [Concomitant]
     Active Substance: METHYLPHENIDATE HYDROCHLORIDE
  3. INDOCIN [Concomitant]
     Active Substance: INDOMETHACIN
  4. OMEPRAZOLE. [Concomitant]
     Active Substance: OMEPRAZOLE
  5. VYVANSE [Concomitant]
     Active Substance: LISDEXAMFETAMINE DIMESYLATE
  6. ZOFRAN [Concomitant]
     Active Substance: ONDANSETRON HYDROCHLORIDE
  7. MIDODRINE [Concomitant]
     Active Substance: MIDODRINE

REACTIONS (5)
  - Heart rate increased [None]
  - Gait disturbance [None]
  - Balance disorder [None]
  - Vertigo [None]
  - Autonomic nervous system imbalance [None]

NARRATIVE: CASE EVENT DATE: 20170626
